FAERS Safety Report 15488477 (Version 1)
Quarter: 2018Q4

REPORT INFORMATION
  Report Type: Spontaneous
  Country: US (occurrence: US)
  Receive Date: 20181011
  Receipt Date: 20181011
  Transmission Date: 20190205
  Serious: Yes (Hospitalization, Disabling, Other)
  Sender: FDA-Public Use
  Company Number: US-JNJFOC-20181011750

PATIENT
  Age: 44 Year
  Sex: Male

DRUGS (3)
  1. HUMALOG [Concomitant]
     Active Substance: INSULIN LISPRO
     Indication: TYPE 1 DIABETES MELLITUS
     Route: 065
  2. LANTUS [Concomitant]
     Active Substance: INSULIN GLARGINE
     Indication: TYPE 1 DIABETES MELLITUS
     Route: 065
  3. INVOKANA [Suspect]
     Active Substance: CANAGLIFLOZIN
     Indication: TYPE 2 DIABETES MELLITUS
     Dosage: IN VARYING DOSES OF 100 MG AND 300 MG
     Route: 048
     Dates: start: 20130822

REACTIONS (8)
  - Diabetes mellitus inadequate control [Unknown]
  - Leg amputation [Unknown]
  - Diabetic foot [Unknown]
  - Skin ulcer [Unknown]
  - Diabetic gangrene [Unknown]
  - Osteomyelitis [Unknown]
  - Leg amputation [Unknown]
  - Impaired healing [Unknown]

NARRATIVE: CASE EVENT DATE: 20131025
